FAERS Safety Report 11422159 (Version 1)
Quarter: 2015Q3

REPORT INFORMATION
  Report Type: Spontaneous
  Country: JP (occurrence: JP)
  Receive Date: 20150827
  Receipt Date: 20150827
  Transmission Date: 20151125
  Serious: Yes (Hospitalization)
  Sender: FDA-Public Use
  Company Number: JP-ROCHE-1617449

PATIENT
  Age: 17 Year
  Sex: Female

DRUGS (1)
  1. ACTEMRA [Suspect]
     Active Substance: TOCILIZUMAB
     Indication: JUVENILE IDIOPATHIC ARTHRITIS
     Dosage: MOST RECENT DOS EWAS TAKEN ON 24/JUL/2015
     Route: 065
     Dates: start: 20150704

REACTIONS (2)
  - Off label use [Unknown]
  - Leukaemia [Not Recovered/Not Resolved]
